FAERS Safety Report 25756262 (Version 1)
Quarter: 2025Q3

REPORT INFORMATION
  Report Type: Spontaneous
  Country: US (occurrence: None)
  Receive Date: 20250902
  Receipt Date: 20250902
  Transmission Date: 20251021
  Serious: No
  Sender: FDA-CTU
  Company Number: None

PATIENT
  Age: 69 Year
  Sex: Female
  Weight: 110.25 kg

DRUGS (8)
  1. OFLOXACIN [Suspect]
     Active Substance: OFLOXACIN
     Indication: Cataract operation
     Dosage: OTHER QUANTITY : 1 DROP(S)?FREQUENCY : 4 TIMES A DAY?
     Route: 047
     Dates: start: 20250821, end: 20250828
  2. Lisinopril 20 mgs [Concomitant]
  3. Metoprolol SUCC ER 25mg [Concomitant]
  4. Rosuvastatin 10 mgs [Concomitant]
  5. Meloxicam 7.5 mgs [Concomitant]
  6. PrednisoLone Acetate Ophthalmic 1% SUSP [Concomitant]
  7. Vitamin D Preservision AREDS 2 2 times [Concomitant]
  8. daily Sodium Chloride Hypertonicity Ophthalmic Solution 5 % [Concomitant]

REACTIONS (2)
  - Pupillary disorder [None]
  - Erythema [None]

NARRATIVE: CASE EVENT DATE: 20250821
